FAERS Safety Report 6121306-4 (Version None)
Quarter: 2009Q1

REPORT INFORMATION
  Report Type: 
  Country: None (occurrence: None)
  Receive Date: 20090313
  Receipt Date: 20090306
  Transmission Date: 20090719
  Serious: Yes (Hospitalization, Other)
  Sender: FDA-Public Use
  Company Number: 2009SP003448

PATIENT
  Age: 33 Year
  Sex: Male
  Weight: 75 kg

DRUGS (3)
  1. VIRAFERONPEG [Suspect]
     Indication: HEPATITIS C
     Dosage: 108 MCG; QW; SC
     Route: 058
     Dates: start: 20080106, end: 20080307
  2. REBETOL [Suspect]
     Indication: HEPATITIS C
     Dosage: 1000 MG; QD; PO
     Route: 048
     Dates: start: 20080106, end: 20080307
  3. PARACETAMOL [Concomitant]

REACTIONS (2)
  - CHOROIDITIS [None]
  - INTRAOCULAR PRESSURE INCREASED [None]
